FAERS Safety Report 12566226 (Version 1)
Quarter: 2016Q3

REPORT INFORMATION
  Report Type: Spontaneous
  Country: US (occurrence: US)
  Receive Date: 20160718
  Receipt Date: 20160718
  Transmission Date: 20161109
  Serious: No
  Sender: FDA-Public Use
  Company Number: US-ASTRAZENECA-2016SE72010

PATIENT
  Age: 849 Month
  Sex: Female

DRUGS (1)
  1. PULMICORT FLEXHALER [Suspect]
     Active Substance: BUDESONIDE
     Indication: COUGH
     Dosage: 90 MCG 165 MG-1 PUFF 2 TIMES DAILY
     Route: 055
     Dates: start: 20160623

REACTIONS (3)
  - Asthenia [Unknown]
  - Insomnia [Unknown]
  - Pneumonia [Unknown]

NARRATIVE: CASE EVENT DATE: 201606
